FAERS Safety Report 5062714-2 (Version None)
Quarter: 2006Q3

REPORT INFORMATION
  Report Type: 
  Country: None (occurrence: None)
  Receive Date: 20060725
  Receipt Date: 20060725
  Transmission Date: 20061208
  Serious: Yes (Hospitalization)
  Sender: FDA-Public Use
  Company Number: None

PATIENT
  Age: 68 Year
  Sex: Male
  Weight: 84 kg

DRUGS (14)
  1. ENOXAPARIN 60MG/ML INJECTION [Suspect]
     Indication: THROMBOSIS PROPHYLAXIS
     Dosage: 60MG DAILY SQ
     Route: 058
  2. ALBUTEROL SPIROS [Concomitant]
  3. CIPROFLOXACIN [Concomitant]
  4. LANOXIN [Concomitant]
  5. DILTIAZEM HCL [Concomitant]
  6. LORAZEPAM [Concomitant]
  7. METHYLPREDNISOLONE [Concomitant]
  8. MULTIVITAMINS/MINERALS [Concomitant]
  9. PIPERACILLIN/TAZOBACT [Concomitant]
  10. SODIUM CHLORIDE [Concomitant]
  11. THIAMINE [Concomitant]
  12. TRAVOPRO [Concomitant]
  13. FOLIC ACID TAB [Concomitant]
  14. IPRATROPIUM SOLN, INHL [Concomitant]

REACTIONS (1)
  - HEPARIN-INDUCED THROMBOCYTOPENIA [None]
